FAERS Safety Report 23522873 (Version 2)
Quarter: 2024Q1

REPORT INFORMATION
  Report Type: Spontaneous
  Country: ES (occurrence: None)
  Receive Date: 20240214
  Receipt Date: 20240226
  Transmission Date: 20240409
  Serious: Yes (Other)
  Sender: FDA-Public Use
  Company Number: 2024A036191

PATIENT
  Age: 1 Month
  Sex: Male
  Weight: 5.2 kg

DRUGS (1)
  1. BEYFORTUS [Suspect]
     Active Substance: NIRSEVIMAB-ALIP
     Indication: Respiratory syncytial virus immunisation
     Dosage: UNK, TOTAL ONCE/SINGLE ADMINISTRATION
     Dates: start: 20231107, end: 20231107

REACTIONS (6)
  - Respiratory syncytial virus infection [Recovering/Resolving]
  - Rhinovirus infection [Recovering/Resolving]
  - Cough [Recovering/Resolving]
  - Bronchiolitis [Recovering/Resolving]
  - Pyrexia [Recovered/Resolved]
  - Drug ineffective [Recovering/Resolving]

NARRATIVE: CASE EVENT DATE: 20231226
